FAERS Safety Report 14631908 (Version 5)
Quarter: 2022Q2

REPORT INFORMATION
  Report Type: Report from Study
  Country: DK (occurrence: DK)
  Receive Date: 20180313
  Receipt Date: 20220422
  Transmission Date: 20220721
  Serious: Yes (Hospitalization, Other)
  Sender: FDA-Public Use
  Company Number: DK-IPSEN BIOPHARMACEUTICALS, INC.-2018-03838

PATIENT
  Age: 81 Year
  Sex: Female
  Weight: 50 kg

DRUGS (24)
  1. ONIVYDE [Suspect]
     Active Substance: IRINOTECAN HYDROCHLORIDE
     Indication: Chronic lymphocytic leukaemia
     Dosage: NOT REPORTED
     Route: 065
  2. ONIVYDE [Suspect]
     Active Substance: IRINOTECAN HYDROCHLORIDE
     Dosage: UNK
     Route: 065
  3. FOSAMAX [Suspect]
     Active Substance: ALENDRONATE SODIUM
     Indication: Chronic lymphocytic leukaemia
     Dosage: 70 MG, QWK
     Route: 065
     Dates: start: 20150409
  4. CISPLATIN [Suspect]
     Active Substance: CISPLATIN
     Indication: Chronic lymphocytic leukaemia
     Dosage: UNK
     Route: 065
  5. HERCEPTIN [Suspect]
     Active Substance: TRASTUZUMAB
     Indication: Chronic lymphocytic leukaemia
     Dosage: UNK
     Route: 065
  6. ALKERAN [Suspect]
     Active Substance: MELPHALAN
     Indication: Product used for unknown indication
     Dosage: UNK
     Route: 065
  7. ALKERAN [Suspect]
     Active Substance: MELPHALAN
     Dosage: UNK
     Route: 065
  8. XGEVA [Suspect]
     Active Substance: DENOSUMAB
     Indication: Chronic lymphocytic leukaemia
     Dosage: 120 MG, UNK
     Route: 058
     Dates: start: 20150409, end: 20170305
  9. XGEVA [Suspect]
     Active Substance: DENOSUMAB
     Indication: Metastases to bone
  10. ALENDRONATE SODIUM [Suspect]
     Active Substance: ALENDRONATE SODIUM
     Indication: Osteoporosis
     Dosage: 70 MG, QWK
     Route: 048
  11. GLIVEC [Suspect]
     Active Substance: IMATINIB MESYLATE
     Indication: Chronic lymphocytic leukaemia
     Dosage: 100 MG - 400 MG, TABLET X 3 OR 1 TABLET X 1
     Route: 065
  12. GLIVEC [Suspect]
     Active Substance: IMATINIB MESYLATE
     Dosage: 100 MG-400 MG 3 OR 1 TABLET
     Route: 065
     Dates: start: 20141028
  13. CYTARABINE [Suspect]
     Active Substance: CYTARABINE
     Indication: Product used for unknown indication
     Route: 065
  14. CYCLOPHOSPHAMIDE [Suspect]
     Active Substance: CYCLOPHOSPHAMIDE
     Indication: Chronic lymphocytic leukaemia
     Route: 065
  15. THALIDOMIDE [Suspect]
     Active Substance: THALIDOMIDE
     Indication: Chronic lymphocytic leukaemia
     Route: 065
  16. PREDNISOLONE [Suspect]
     Active Substance: PREDNISOLONE
     Indication: Product used for unknown indication
     Dosage: 7.5 MG, QD
     Route: 048
     Dates: start: 20151021, end: 20161031
  17. PEMETREXED DISODIUM [Suspect]
     Active Substance: PEMETREXED DISODIUM
     Indication: Chronic lymphocytic leukaemia
     Route: 065
  18. VINORELBINE TARTRATE [Suspect]
     Active Substance: VINORELBINE TARTRATE
     Indication: Chronic lymphocytic leukaemia
     Route: 065
  19. BLINATUMOMAB [Suspect]
     Active Substance: BLINATUMOMAB
     Indication: Product used for unknown indication
     Route: 065
  20. TEMOZOLOMIDE [Suspect]
     Active Substance: TEMOZOLOMIDE
     Indication: Chronic lymphocytic leukaemia
     Route: 065
  21. OXALIPLATIN [Suspect]
     Active Substance: OXALIPLATIN
     Indication: Product used for unknown indication
     Route: 065
  22. VINCRISTINE [Suspect]
     Active Substance: VINCRISTINE
     Indication: Product used for unknown indication
     Route: 065
  23. CARBOPLATIN [Suspect]
     Active Substance: CARBOPLATIN
     Indication: Chronic lymphocytic leukaemia
     Route: 065
  24. TRASTUZUMAB [Suspect]
     Active Substance: TRASTUZUMAB
     Indication: Metastases to lung
     Route: 065

REACTIONS (3)
  - Jaw operation [Unknown]
  - Osteonecrosis of jaw [Recovered/Resolved]
  - Off label use [Recovered/Resolved]

NARRATIVE: CASE EVENT DATE: 20150101
